FAERS Safety Report 19738008 (Version 1)
Quarter: 2021Q3

REPORT INFORMATION
  Report Type: Report from Study
  Country: IE (occurrence: IE)
  Receive Date: 20210823
  Receipt Date: 20210823
  Transmission Date: 20211014
  Serious: Yes (Other)
  Sender: FDA-Public Use
  Company Number: IE-MYLANLABS-2021M1050785

PATIENT
  Age: 56 Year
  Sex: Female

DRUGS (1)
  1. HULIO [Suspect]
     Active Substance: ADALIMUMAB-FKJP
     Indication: RHEUMATOID ARTHRITIS
     Dosage: 40 MILLIGRAM, FORTNIGHTLY
     Dates: start: 20210727, end: 20210727

REACTIONS (7)
  - Hypersensitivity [Recovering/Resolving]
  - Malaise [Recovering/Resolving]
  - Injection site rash [Recovering/Resolving]
  - Lip disorder [Recovering/Resolving]
  - Rash [Recovering/Resolving]
  - Hypoaesthesia oral [Recovering/Resolving]
  - Paraesthesia oral [Recovering/Resolving]
